FAERS Safety Report 9137611 (Version 1)
Quarter: 2013Q1

REPORT INFORMATION
  Report Type: Spontaneous
  Country: US (occurrence: US)
  Receive Date: 20130304
  Receipt Date: 20130304
  Transmission Date: 20140127
  Serious: No
  Sender: FDA-Public Use
  Company Number: US-B.I. PHARMACEUTICALS,INC./RIDGEFIELD-2013-BI-05326BP

PATIENT
  Age: 84 None
  Sex: Female
  Weight: 56 kg

DRUGS (3)
  1. SPIRIVA [Suspect]
     Indication: CHRONIC OBSTRUCTIVE PULMONARY DISEASE
     Dosage: 18 MCG
     Route: 055
     Dates: start: 2009
  2. SYMBICORT [Concomitant]
     Route: 055
  3. PROAIR [Concomitant]
     Route: 055

REACTIONS (2)
  - Blood urine [Not Recovered/Not Resolved]
  - Lacrimation increased [Not Recovered/Not Resolved]
